FAERS Safety Report 7145759-8 (Version None)
Quarter: 2010Q4

REPORT INFORMATION
  Report Type: 
  Country: None (occurrence: None)
  Receive Date: 20101208
  Receipt Date: 20101124
  Transmission Date: 20110411
  Serious: Yes (Death, Life-Threatening, Disabling)
  Sender: FDA-Public Use
  Company Number: A0687531A

PATIENT
  Sex: Male
  Weight: 3 kg

DRUGS (4)
  1. PAXIL [Suspect]
     Indication: DEPRESSION
     Dates: start: 20030101, end: 20070101
  2. PAXIL CR [Suspect]
     Indication: DEPRESSION
     Dates: start: 20020101, end: 20070101
  3. PRENATAL VITAMINS [Concomitant]
  4. IRON [Concomitant]

REACTIONS (26)
  - ABDOMINAL DISTENSION [None]
  - ATRIAL SEPTAL DEFECT [None]
  - CAESAREAN SECTION [None]
  - DILATATION VENTRICULAR [None]
  - DISSEMINATED INTRAVASCULAR COAGULATION [None]
  - DRUG EXPOSURE DURING PREGNANCY [None]
  - EBSTEIN'S ANOMALY [None]
  - HAEMODYNAMIC INSTABILITY [None]
  - INTRAVENTRICULAR HAEMORRHAGE [None]
  - LIVER FUNCTION TEST ABNORMAL [None]
  - LUNG DISORDER [None]
  - MATERNAL DRUGS AFFECTING FOETUS [None]
  - MULTI-ORGAN FAILURE [None]
  - PATENT DUCTUS ARTERIOSUS [None]
  - PERITONEAL DIALYSIS [None]
  - PLATELET COUNT DECREASED [None]
  - PREMATURE BABY [None]
  - PSEUDOMONAL SEPSIS [None]
  - PULMONARY ARTERY ATRESIA [None]
  - PULMONARY VALVE DISEASE [None]
  - PURPURA [None]
  - RASH [None]
  - RENAL FAILURE [None]
  - SUPRAVENTRICULAR TACHYCARDIA [None]
  - TRICUSPID VALVE INCOMPETENCE [None]
  - WOLFF-PARKINSON-WHITE SYNDROME CONGENITAL [None]
